FAERS Safety Report 9026183 (Version 3)
Quarter: 2013Q1

REPORT INFORMATION
  Report Type: Spontaneous
  Country: US (occurrence: None)
  Receive Date: 20130104
  Receipt Date: 20130205
  Transmission Date: 20140127
  Serious: Yes (Other)
  Sender: FDA-Public Use
  Company Number: 2012P1067660

PATIENT
  Age: 49 Year
  Sex: Male
  Weight: 77.11 kg

DRUGS (13)
  1. PROCHLORPERAZINE MALEATE [Suspect]
     Indication: NAUSEA
     Dosage: PRN
     Route: 048
     Dates: start: 20120611
  2. PROCHLORPERAZINE MALEATE [Suspect]
     Indication: VOMITING
     Dosage: PRN
     Route: 048
     Dates: start: 20120611
  3. ONDANSETRON [Suspect]
     Indication: NAUSEA
     Dosage: PRN
     Route: 048
     Dates: start: 201104
  4. ONDANSETRON [Suspect]
     Indication: VOMITING
     Dosage: PRN
     Route: 048
     Dates: start: 201104
  5. DECADRON (DEXAMETHASONE) TABLETS [Concomitant]
  6. NORVASC [Concomitant]
  7. ATIVAN [Concomitant]
  8. PRILOSEC [Concomitant]
  9. ZOCOR [Concomitant]
  10. AMBIEN [Concomitant]
  11. CAMPTOSAR [Concomitant]
  12. LEUCOVORIN [Concomitant]
  13. 5FU [Concomitant]

REACTIONS (5)
  - Drug ineffective [None]
  - Weight decreased [None]
  - Decreased appetite [None]
  - Nausea [None]
  - Vomiting [None]
